FAERS Safety Report 19890154 (Version 1)
Quarter: 2021Q3

REPORT INFORMATION
  Report Type: Spontaneous
  Country: US (occurrence: US)
  Receive Date: 20210919
  Receipt Date: 20210919
  Transmission Date: 20211014
  Serious: No
  Sender: FDA-Public Use
  Company Number: None

PATIENT
  Age: 35 Year
  Sex: Male
  Weight: 76.5 kg

DRUGS (1)
  1. QUICKSILVER POPPERS ISOBUTYL NITRITE SOLVENT CLEANER [Suspect]
     Active Substance: ISOBUTYL NITRITE
     Indication: SEXUAL DYSFUNCTION
     Dosage: ?          OTHER FREQUENCY:UNKNOWN;?
     Route: 055
     Dates: start: 20210401, end: 20210501

REACTIONS (6)
  - Dizziness [None]
  - Loss of libido [None]
  - Fatigue [None]
  - Rash pruritic [None]
  - Rash [None]
  - Tinnitus [None]

NARRATIVE: CASE EVENT DATE: 20210501
